FAERS Safety Report 5600913-9 (Version None)
Quarter: 2008Q1

REPORT INFORMATION
  Report Type: 
  Country: None (occurrence: None)
  Receive Date: 20080124
  Receipt Date: 20080121
  Transmission Date: 20080703
  Serious: Yes (Other)
  Sender: FDA-Public Use
  Company Number: NL-BAYER-200717885GPV

PATIENT
  Age: 74 Year
  Sex: Male

DRUGS (5)
  1. ULTRAVIST 370 [Suspect]
     Indication: CATHETERISATION CARDIAC
     Route: 013
     Dates: start: 20071205
  2. BISOPROLOL FUMARATE [Concomitant]
  3. FENPROCOUMON [Concomitant]
  4. HYDROCHLOROTHIAZIDE [Concomitant]
  5. MICARDIS [Concomitant]

REACTIONS (2)
  - ANAPHYLACTIC SHOCK [None]
  - BLOOD PRESSURE DECREASED [None]
